FAERS Safety Report 21476693 (Version 1)
Quarter: 2022Q4

REPORT INFORMATION
  Report Type: Report from Study
  Country: IT (occurrence: IT)
  Receive Date: 20221019
  Receipt Date: 20221019
  Transmission Date: 20230113
  Serious: Yes (Hospitalization)
  Sender: FDA-Public Use
  Company Number: None

PATIENT
  Age: 93 Year
  Sex: Female

DRUGS (9)
  1. FUROSEMIDE [Suspect]
     Active Substance: FUROSEMIDE
     Indication: Product used for unknown indication
     Dosage: FUROSEMIDE 25 MG (2 CP 8 HOURS AND 2 CP 18 HOURS)
  2. MELATONIN [Concomitant]
     Active Substance: MELATONIN
  3. DILTIAZEM [Concomitant]
     Active Substance: DILTIAZEM
     Dosage: DILTIAZEM 60 X 3
  4. TRAZODONE HYDROCHLORIDE [Concomitant]
     Active Substance: TRAZODONE HYDROCHLORIDE
  5. EDOXABAN [Concomitant]
     Active Substance: EDOXABAN
  6. PANTOPRAZOLE [Concomitant]
     Active Substance: PANTOPRAZOLE
  7. ASPIRIN DL-LYSINE [Concomitant]
     Active Substance: ASPIRIN DL-LYSINE
  8. VALSARTAN [Concomitant]
     Active Substance: VALSARTAN
  9. POTASSIUM CHLORIDE [Concomitant]
     Active Substance: POTASSIUM CHLORIDE
     Dosage: KCL RETARD 600 MG 1 CPR AT 8:00 AND 20:00 HOURS

REACTIONS (1)
  - Acute kidney injury [Recovering/Resolving]

NARRATIVE: CASE EVENT DATE: 20220708
